FAERS Safety Report 7968934-9 (Version None)
Quarter: 2011Q4

REPORT INFORMATION
  Report Type: 
  Country: None (occurrence: None)
  Receive Date: 20111209
  Receipt Date: 20111208
  Transmission Date: 20120403
  Serious: Yes (Other)
  Sender: FDA-Public Use
  Company Number: US-PFIZER INC-2011300342

PATIENT
  Sex: Female
  Weight: 61.224 kg

DRUGS (2)
  1. CHANTIX [Suspect]
     Indication: SMOKING CESSATION THERAPY
     Dosage: UNK
     Route: 048
     Dates: start: 20111101, end: 20111207
  2. NEURONTIN [Concomitant]
     Indication: BACK PAIN
     Dosage: UNK

REACTIONS (5)
  - HEADACHE [None]
  - FATIGUE [None]
  - PAIN [None]
  - NAUSEA [None]
  - PALPITATIONS [None]
